FAERS Safety Report 8180738-3 (Version None)
Quarter: 2012Q1

REPORT INFORMATION
  Report Type: 
  Country: None (occurrence: None)
  Receive Date: 20120302
  Receipt Date: 20120217
  Transmission Date: 20120608
  Serious: Yes (Hospitalization)
  Sender: FDA-Public Use
  Company Number: FR-ROCHE-1041514

PATIENT
  Sex: Male
  Weight: 78 kg

DRUGS (1)
  1. PEGINTERFERON ALFA-2A [Suspect]
     Indication: HEPATITIS B

REACTIONS (2)
  - HEPATIC STEATOSIS [None]
  - HEPATIC NEOPLASM MALIGNANT [None]
